FAERS Safety Report 11737741 (Version 4)
Quarter: 2015Q4

REPORT INFORMATION
  Report Type: Spontaneous
  Country: JP (occurrence: JP)
  Receive Date: 20151113
  Receipt Date: 20151216
  Transmission Date: 20160304
  Serious: Yes (Other)
  Sender: FDA-Public Use
  Company Number: JP-DSJP-DSJ-2015-135286AA

PATIENT

DRUGS (5)
  1. SELBEX [Concomitant]
     Active Substance: TEPRENONE
     Dosage: 0.5 G, QD
     Route: 048
  2. VITANEURIN                         /02035001/ [Concomitant]
     Dosage: 1 DF, QD
     Route: 048
  3. OLMETEC TABLETS 20MG [Suspect]
     Active Substance: OLMESARTAN MEDOXOMIL
     Indication: HYPERTENSION
     Dosage: 20 MG, QD
     Route: 048
     Dates: start: 20150604, end: 20150622
  4. HICEE                              /00008001/ [Concomitant]
     Dosage: 1 G, QD
     Route: 048
  5. BAYASPIRIN [Concomitant]
     Active Substance: ASPIRIN
     Dosage: 100 MG, QD
     Route: 048

REACTIONS (2)
  - Hypersensitivity [Recovered/Resolved]
  - Alveolitis allergic [Recovering/Resolving]

NARRATIVE: CASE EVENT DATE: 20150622
